FAERS Safety Report 10200669 (Version 1)
Quarter: 2014Q2

REPORT INFORMATION
  Report Type: Spontaneous
  Country: US (occurrence: US)
  Receive Date: 20140528
  Receipt Date: 20140528
  Transmission Date: 20141212
  Serious: No
  Sender: FDA-Public Use
  Company Number: US-TEVA-469695USA

PATIENT
  Sex: Female

DRUGS (1)
  1. SEASONIQUE [Suspect]
     Indication: CONTRACEPTION
     Dosage: 0.15 MG / 0.03 MG / 0.01 MG

REACTIONS (3)
  - Menstruation irregular [Unknown]
  - Metrorrhagia [Not Recovered/Not Resolved]
  - Drug ineffective [Unknown]
